APPROVED DRUG PRODUCT: FLUOROURACIL
Active Ingredient: FLUOROURACIL
Strength: 5%
Dosage Form/Route: CREAM;TOPICAL
Application: A216942 | Product #001 | TE Code: AB
Applicant: ENCUBE ETHICALS PRIVATE LTD
Approved: Feb 12, 2025 | RLD: No | RS: No | Type: RX